FAERS Safety Report 8157814 (Version 3)
Quarter: 2013Q1

REPORT INFORMATION
  Report Type: Spontaneous
  Country: US (occurrence: US)
  Receive Date: 20110927
  Receipt Date: 20130218
  Transmission Date: 20140127
  Serious: Yes (Other)
  Sender: FDA-Public Use
  Company Number: US-ASTRAZENECA-2011SE12717

PATIENT
  Age: 54 Year
  Sex: Female

DRUGS (15)
  1. SEROQUEL [Suspect]
     Dosage: 1 TWICE A DAY AND 2 AT BEDTIME
     Route: 048
     Dates: start: 200404
  2. EFFEXOR [Concomitant]
     Dates: start: 200404
  3. BACLOFEN [Concomitant]
     Dates: start: 200404
  4. ESTRATEST [Concomitant]
     Dosage: ONE AT BEDTIME
     Dates: start: 200404
  5. PROMETRIUM [Concomitant]
     Dates: start: 200404
  6. TEGRETOL [Concomitant]
     Dates: start: 200404
  7. KLONOPIN [Concomitant]
     Dates: start: 200404
  8. NEXIUM [Concomitant]
     Dates: start: 200404
  9. DONNATAL [Concomitant]
     Dosage: THREE TIMES A DAY
     Dates: start: 200404
  10. FLAGYL [Concomitant]
     Dates: start: 200404
  11. BIAXIN [Concomitant]
     Dates: start: 200404
  12. AMOXICILLIN [Concomitant]
     Dosage: 500 MG 2 TWICE A DAY
     Dates: start: 200404
  13. OXYCODONE [Concomitant]
     Dates: start: 200404
  14. CELEBREX [Concomitant]
     Dates: start: 200404
  15. METHADONE [Concomitant]
     Dates: start: 200404

REACTIONS (3)
  - Pancreatitis [Unknown]
  - Diabetic coma [Unknown]
  - Type 2 diabetes mellitus [Unknown]
